FAERS Safety Report 4698854-7 (Version None)
Quarter: 2005Q2

REPORT INFORMATION
  Report Type: 
  Country: None (occurrence: None)
  Receive Date: 20050623
  Receipt Date: 20050610
  Transmission Date: 20051028
  Serious: Yes (Life-Threatening)
  Sender: FDA-Public Use
  Company Number: 2005083610

PATIENT
  Age: 87 Year
  Sex: Male

DRUGS (5)
  1. ALDACTONE [Suspect]
     Indication: ESSENTIAL HYPERTENSION
     Dosage: 25 MG (25 MG, INTERVAL: EVERY DAY, ORAL
     Route: 048
     Dates: end: 20050319
  2. TRINITRINA (GLYCERYL TRINITRATE) [Suspect]
     Indication: ANGINA PECTORIS
     Dosage: 10 MG (10 MG, 1 IN 24 HR), TRANSDERMAL
     Route: 062
     Dates: end: 20050319
  3. NICARDIPINE (NICARDIPINE) [Suspect]
     Indication: ESSENTIAL HYPERTENSION
     Dosage: 50 MG (50 MG, INTERVAL: EVERY DAY), ORAL
     Route: 048
     Dates: end: 20050319
  4. GLICLAZIDE (GLICLAZIDE) [Suspect]
     Indication: DIABETES MELLITUS
     Dosage: 30 MG (INTERVAL: EVERY DAY), ORAL
     Route: 048
     Dates: end: 20050319
  5. CLOPIDOGREL BISULFATE [Suspect]
     Indication: PROPHYLAXIS
     Dosage: 1 DOSE FORM (INTERVAL: EVERY DAY), ORAL
     Route: 048
     Dates: end: 20050319

REACTIONS (4)
  - HYPERSENSITIVITY [None]
  - PURPURA [None]
  - RECTAL HAEMORRHAGE [None]
  - THROMBOCYTOPENIA [None]
